FAERS Safety Report 22167210 (Version 3)
Quarter: 2023Q4

REPORT INFORMATION
  Report Type: Spontaneous
  Country: JP (occurrence: JP)
  Receive Date: 20230403
  Receipt Date: 20231208
  Transmission Date: 20240110
  Serious: Yes (Hospitalization, Other)
  Sender: FDA-Public Use
  Company Number: JP-MSD-M2023-11325

PATIENT
  Age: 80 Year
  Sex: Male
  Weight: 62 kg

DRUGS (13)
  1. KEYTRUDA [Suspect]
     Active Substance: PEMBROLIZUMAB
     Indication: Clear cell renal cell carcinoma
     Dosage: 200 MILLIGRAM, Q3W
     Route: 041
  2. KEYTRUDA [Suspect]
     Active Substance: PEMBROLIZUMAB
     Dosage: 400 MILLIGRAM, EVERY 6 WEEKS
     Route: 041
     Dates: start: 20220825, end: 20230202
  3. LENVATINIB MESYLATE [Suspect]
     Active Substance: LENVATINIB MESYLATE
     Indication: Clear cell renal cell carcinoma
     Dosage: 20 MILLIGRAM
     Route: 048
  4. LENVATINIB MESYLATE [Suspect]
     Active Substance: LENVATINIB MESYLATE
     Dosage: 14 MILLIGRAM
     Route: 048
  5. LENVATINIB MESYLATE [Suspect]
     Active Substance: LENVATINIB MESYLATE
     Dosage: 10 MILLIGRAM, CONTINUOUSLY
     Route: 048
     Dates: start: 20220825, end: 202303
  6. LENVATINIB MESYLATE [Suspect]
     Active Substance: LENVATINIB MESYLATE
     Dosage: 8 MILLIGRAM
     Route: 048
     Dates: start: 2023
  7. PRAVASTATIN SODIUM [Concomitant]
     Active Substance: PRAVASTATIN SODIUM
     Dosage: 10 MILLIGRAM
     Route: 048
  8. NIFEDIPINE [Concomitant]
     Active Substance: NIFEDIPINE
     Dosage: 20 MILLIGRAM
     Route: 048
  9. RUPAFIN [Concomitant]
     Active Substance: RUPATADINE FUMARATE
     Dosage: 10 MILLIGRAM
     Route: 048
  10. MONTELUKAST SODIUM [Concomitant]
     Active Substance: MONTELUKAST SODIUM
     Dosage: 10 MILLIGRAM
     Route: 048
  11. CARBOCYSTEINE [Concomitant]
     Active Substance: CARBOCYSTEINE
     Dosage: 500 MILLIGRAM
     Route: 048
  12. AMLODIPINE BESYLATE [Concomitant]
     Active Substance: AMLODIPINE BESYLATE
     Dosage: 2.5 MILLIGRAM
     Route: 048
  13. LEVOTHYROXINE SODIUM [Concomitant]
     Active Substance: LEVOTHYROXINE SODIUM
     Dosage: 50 MICROGRAM
     Route: 048

REACTIONS (7)
  - Hypothyroidism [Unknown]
  - Blood creatine phosphokinase increased [Recovering/Resolving]
  - Muscular weakness [Unknown]
  - Myasthenia gravis [Unknown]
  - Immune-mediated myocarditis [Recovered/Resolved]
  - Myositis [Unknown]
  - Hypertension [Unknown]

NARRATIVE: CASE EVENT DATE: 20230316
